FAERS Safety Report 7116911-2 (Version None)
Quarter: 2010Q4

REPORT INFORMATION
  Report Type: 
  Country: None (occurrence: None)
  Receive Date: 20101122
  Receipt Date: 20101112
  Transmission Date: 20110411
  Serious: Yes (Other)
  Sender: FDA-Public Use
  Company Number: US-MPIJNJ-2010-05650

PATIENT
  Sex: Female

DRUGS (8)
  1. VELCADE [Suspect]
     Indication: MULTIPLE MYELOMA
     Dosage: 1 MG/M2, CYCLIC
     Dates: start: 20091013
  2. REVLIMID [Suspect]
     Indication: MULTIPLE MYELOMA
     Dosage: 15 MG, CYCLIC
     Route: 048
     Dates: start: 20090227, end: 20100217
  3. REVLIMID [Suspect]
     Dosage: 15 MG, CYCLIC
     Route: 048
     Dates: start: 20100610
  4. REVLIMID [Suspect]
     Dosage: 25 MG, CYCLIC
     Route: 048
     Dates: start: 20091013
  5. DEXAMETHASONE [Suspect]
     Indication: MULTIPLE MYELOMA
     Dosage: 40 MG, CYCLIC
     Route: 048
     Dates: start: 20091013
  6. PERIDEX                            /00133002/ [Concomitant]
     Indication: GLOSSODYNIA
  7. PERIDEX                            /00133002/ [Concomitant]
     Indication: OROPHARYNGEAL PAIN
  8. FENTANYL [Concomitant]
     Indication: BACK PAIN
     Dosage: 75 UG, UNK

REACTIONS (10)
  - ANAEMIA [None]
  - BONE MARROW FAILURE [None]
  - CELLULITIS [None]
  - DIARRHOEA [None]
  - FATIGUE [None]
  - MUCOSAL INFLAMMATION [None]
  - PARAESTHESIA [None]
  - PELVIC FRACTURE [None]
  - THROMBOCYTOPENIA [None]
  - WOUND [None]
